FAERS Safety Report 18859057 (Version 1)
Quarter: 2021Q1

REPORT INFORMATION
  Report Type: Spontaneous
  Country: US (occurrence: US)
  Receive Date: 20210205
  Receipt Date: 20210205
  Transmission Date: 20210420
  Serious: No
  Sender: FDA-Public Use
  Company Number: None

PATIENT
  Age: 72 Year
  Sex: Male

DRUGS (1)
  1. ERLEADA [Suspect]
     Active Substance: APALUTAMIDE
     Route: 048

REACTIONS (4)
  - Peripheral embolism [None]
  - Cholelithiasis [None]
  - Therapy interrupted [None]
  - Inappropriate schedule of product administration [None]

NARRATIVE: CASE EVENT DATE: 20201229
